FAERS Safety Report 5306622-8 (Version None)
Quarter: 2007Q2

REPORT INFORMATION
  Report Type: 
  Country: None (occurrence: None)
  Receive Date: 20070424
  Receipt Date: 20070417
  Transmission Date: 20071010
  Serious: Yes (Other)
  Sender: FDA-Public Use
  Company Number: US-PFIZER INC-2007023416

PATIENT
  Sex: Male
  Weight: 129.3 kg

DRUGS (7)
  1. EXUBERA [Suspect]
     Indication: DIABETES MELLITUS
     Dosage: DAILY DOSE:13MG
  2. SITAGLIPTIN [Concomitant]
  3. AVANDIA [Concomitant]
  4. ACCUPRIL [Concomitant]
  5. PRAVACHOL [Concomitant]
  6. GLUCOPHAGE [Concomitant]
  7. DIABETA [Concomitant]

REACTIONS (9)
  - ANGIOPATHY [None]
  - CORONARY ARTERY DISEASE [None]
  - CORONARY ARTERY OCCLUSION [None]
  - EYE DISORDER [None]
  - INCORRECT DOSE ADMINISTERED [None]
  - OBESITY [None]
  - OEDEMA PERIPHERAL [None]
  - RETINAL OEDEMA [None]
  - VISUAL ACUITY REDUCED [None]
